FAERS Safety Report 6673056-3 (Version None)
Quarter: 2010Q2

REPORT INFORMATION
  Report Type: 
  Country: None (occurrence: None)
  Receive Date: 20100408
  Receipt Date: 20100331
  Transmission Date: 20101027
  Serious: Yes (Other)
  Sender: FDA-Public Use
  Company Number: PHHY2010JP09516

PATIENT
  Sex: Male

DRUGS (7)
  1. TEGRETOL [Suspect]
     Indication: EPILEPSY
     Dosage: UNK,UNK
     Route: 048
  2. TOPIRAMATE [Suspect]
     Dosage: 100 MG/DAY
     Route: 048
  3. TOPIRAMATE [Suspect]
     Dosage: 50 MG/DAY
     Route: 048
  4. GABAPENTIN [Concomitant]
     Dosage: 1200 MG/DAY
     Route: 048
  5. GABAPENTIN [Concomitant]
     Dosage: 900 MG/DAY
     Route: 048
  6. DEPAKENE [Concomitant]
     Dosage: UNK,UNK
     Route: 048
  7. MYSTAN AZWELL [Concomitant]
     Dosage: UNK,UNK
     Route: 048

REACTIONS (4)
  - ANTICONVULSANT DRUG LEVEL DECREASED [None]
  - CONVULSION [None]
  - DISTURBANCE IN ATTENTION [None]
  - INJURY [None]
